FAERS Safety Report 20866970 (Version 2)
Quarter: 2022Q2

REPORT INFORMATION
  Report Type: Spontaneous
  Country: HU (occurrence: HU)
  Receive Date: 20220524
  Receipt Date: 20220606
  Transmission Date: 20220720
  Serious: Yes (Death, Other)
  Sender: FDA-Public Use
  Company Number: HU-002147023-NVSC2022HU089622

PATIENT
  Age: 54 Year
  Sex: Male

DRUGS (9)
  1. ESOMEPRAZOLE [Suspect]
     Active Substance: ESOMEPRAZOLE
     Indication: Product used for unknown indication
     Dosage: 40 MILLIGRAM (40 MG)
  2. BISOPROLOL [Suspect]
     Active Substance: BISOPROLOL
     Indication: Product used for unknown indication
     Dosage: 10 MILLIGRAM (10 MG (2X5 MG))
  3. ENTRESTO [Suspect]
     Active Substance: SACUBITRIL\VALSARTAN
     Indication: Product used for unknown indication
     Dosage: 2 DOSAGE FORM, QD (1 DOSAGE FORM, BID)
     Route: 048
     Dates: start: 201905
  4. ENTRESTO [Suspect]
     Active Substance: SACUBITRIL\VALSARTAN
     Dosage: UNK
     Dates: start: 20210214
  5. GLIQUIDONE [Concomitant]
     Active Substance: GLIQUIDONE
     Indication: Product used for unknown indication
     Dosage: 15 MILLIGRAM (15 MG)
  6. POTASSIUM CHLORIDE [Concomitant]
     Active Substance: POTASSIUM CHLORIDE
     Indication: Product used for unknown indication
     Dosage: 600 MILLIGRAM (600 MG)
  7. FUROSEMIDE [Concomitant]
     Active Substance: FUROSEMIDE
     Indication: Product used for unknown indication
     Dosage: 40 MILLIGRAM (40 MG)
  8. ALPRAZOLAM [Concomitant]
     Active Substance: ALPRAZOLAM
     Indication: Product used for unknown indication
     Dosage: 0.25 MILLIGRAM (0.25 MG)
  9. IVABRADINE [Concomitant]
     Active Substance: IVABRADINE
     Indication: Product used for unknown indication
     Dosage: 10 MILLIGRAM (10 MG)

REACTIONS (4)
  - Pancreatitis acute [Fatal]
  - Septic shock [Fatal]
  - Lactic acidosis [Unknown]
  - Disease progression [Unknown]

NARRATIVE: CASE EVENT DATE: 20210901
